FAERS Safety Report 22119221 (Version 2)
Quarter: 2023Q4

REPORT INFORMATION
  Report Type: Spontaneous
  Country: CA (occurrence: CA)
  Receive Date: 20230321
  Receipt Date: 20231213
  Transmission Date: 20240109
  Serious: Yes (Life-Threatening, Hospitalization, Other)
  Sender: FDA-Public Use
  Company Number: CA-MLMSERVICE-20230301-4125929-1

PATIENT
  Age: 61 Year
  Sex: Female

DRUGS (2)
  1. MYCOPHENOLIC ACID [Suspect]
     Active Substance: MYCOPHENOLIC ACID
     Indication: Immunosuppressant drug therapy
  2. TACROLIMUS [Suspect]
     Active Substance: TACROLIMUS
     Indication: Immunosuppressant drug therapy
     Dosage: CAPSULES

REACTIONS (8)
  - Brain abscess [Recovered/Resolved]
  - Encephalomalacia [Unknown]
  - Cerebral nocardiosis [Recovered/Resolved]
  - Cerebral toxoplasmosis [Recovered/Resolved]
  - Acute kidney injury [Not Recovered/Not Resolved]
  - Central nervous system necrosis [Not Recovered/Not Resolved]
  - Seizure [Not Recovered/Not Resolved]
  - Supraventricular tachycardia [Not Recovered/Not Resolved]
